FAERS Safety Report 5992853-0 (Version None)
Quarter: 2008Q4

REPORT INFORMATION
  Report Type: 
  Country: None (occurrence: None)
  Receive Date: 20081209
  Receipt Date: 20071017
  Transmission Date: 20090506
  Serious: No
  Sender: FDA-Public Use
  Company Number: 07H-163-0313350-00

PATIENT
  Age: 54 Year
  Sex: Male

DRUGS (1)
  1. MORPHINE SULFATE INJ [Suspect]
     Dosage: 1MG W/6 MIN LOCK OUT, 30MG/4 HR LIMIT, INTRAVERNOUS
     Route: 042
     Dates: start: 20071009, end: 20071009

REACTIONS (1)
  - RESPIRATORY DEPRESSION [None]
